FAERS Safety Report 9789455 (Version 1)
Quarter: 2013Q4

REPORT INFORMATION
  Report Type: Spontaneous
  Country: IT (occurrence: IT)
  Receive Date: 20131231
  Receipt Date: 20131231
  Transmission Date: 20140711
  Serious: Yes (Other)
  Sender: FDA-Public Use
  Company Number: PHHY2013IT151580

PATIENT
  Age: 11 Year
  Sex: Male

DRUGS (1)
  1. ANASTROZOLE [Suspect]
     Indication: GYNAECOMASTIA

REACTIONS (1)
  - Growth retardation [Unknown]
